FAERS Safety Report 8164535-0 (Version None)
Quarter: 2012Q1

REPORT INFORMATION
  Report Type: 
  Country: None (occurrence: None)
  Receive Date: 20120224
  Receipt Date: 20120215
  Transmission Date: 20120608
  Serious: Yes (Other)
  Sender: FDA-Public Use
  Company Number: US-ASTRAZENECA-2010SE12093

PATIENT
  Age: 75 Year
  Sex: Male

DRUGS (1)
  1. RHINOCORT [Suspect]
     Route: 045

REACTIONS (10)
  - NEOPLASM MALIGNANT [None]
  - FATIGUE [None]
  - ABDOMINAL PAIN [None]
  - PROSTATE CANCER RECURRENT [None]
  - DECREASED APPETITE [None]
  - ILL-DEFINED DISORDER [None]
  - LETHARGY [None]
  - ASTHENIA [None]
  - GENERAL PHYSICAL HEALTH DETERIORATION [None]
  - WEIGHT DECREASED [None]
